FAERS Safety Report 5716980-8 (Version None)
Quarter: 2008Q2

REPORT INFORMATION
  Report Type: 
  Country: None (occurrence: None)
  Receive Date: 20080424
  Receipt Date: 20080414
  Transmission Date: 20081010
  Serious: Yes (Hospitalization)
  Sender: FDA-Public Use
  Company Number: FR-PFIZER INC-2008028311

PATIENT
  Sex: Male

DRUGS (2)
  1. ZOXAN LP [Suspect]
     Route: 048
     Dates: start: 20070913, end: 20071015
  2. BACTRIM [Suspect]
     Indication: PROSTATITIS
     Dosage: DAILY DOSE:800MG
     Route: 048
     Dates: start: 20070913, end: 20071006

REACTIONS (7)
  - CHOLESTASIS [None]
  - CYTOLYTIC HEPATITIS [None]
  - DRUG RASH WITH EOSINOPHILIA AND SYSTEMIC SYMPTOMS [None]
  - ENANTHEMA [None]
  - FACE OEDEMA [None]
  - LEUKOCYTOSIS [None]
  - RASH MORBILLIFORM [None]
